FAERS Safety Report 16231257 (Version 1)
Quarter: 2019Q2

REPORT INFORMATION
  Report Type: Spontaneous
  Country: GB (occurrence: GB)
  Receive Date: 20190424
  Receipt Date: 20190424
  Transmission Date: 20190711
  Serious: Yes (Hospitalization, Other)
  Sender: FDA-Public Use
  Company Number: GB-B.I. PHARMACEUTICALS,INC./RIDGEFIELD-2019-12-001357

PATIENT
  Age: 83 Year
  Sex: Male
  Weight: 79.37 kg

DRUGS (6)
  1. OMEPRAZOLE. [Concomitant]
     Active Substance: OMEPRAZOLE
     Indication: PRODUCT USED FOR UNKNOWN INDICATION
     Dosage: 94
     Route: 065
     Dates: start: 20190328
  2. FUROSEMIDE. [Concomitant]
     Active Substance: FUROSEMIDE
     Indication: PRODUCT USED FOR UNKNOWN INDICATION
     Dosage: IN THE MORNING FORM-245
     Route: 065
     Dates: start: 20190305
  3. BISOPROLOL [Concomitant]
     Active Substance: BISOPROLOL
     Indication: PRODUCT USED FOR UNKNOWN INDICATION
     Dosage: FORM-245
     Route: 065
     Dates: start: 20190227
  4. NASEPTIN [Concomitant]
     Active Substance: CHLORHEXIDINE HYDROCHLORIDE\NEOMYCIN SULFATE
     Indication: PRODUCT USED FOR UNKNOWN INDICATION
     Dosage: APPLY IN BOTH NOSTRILS FOR 10 DAYS; NASAL CREAM FORM-138
     Route: 045
     Dates: start: 20190129
  5. PRADAXA [Suspect]
     Active Substance: DABIGATRAN ETEXILATE MESYLATE
     Indication: EYE DISORDER
     Dosage: FORM-5
     Route: 048
  6. DYMISTA [Concomitant]
     Active Substance: AZELASTINE HYDROCHLORIDE\FLUTICASONE PROPIONATE
     Indication: PRODUCT USED FOR UNKNOWN INDICATION
     Dosage: 1 METERED DOSE IN THE NOSTRIL TWICE DAILY. 137MICROGRAMS/ 50MICROGRAMS/DOSE; NASAL SPRAY FORM-146
     Route: 045
     Dates: start: 20190129

REACTIONS (2)
  - Dyspnoea [Unknown]
  - Melaena [Recovering/Resolving]
